FAERS Safety Report 6245122-8 (Version None)
Quarter: 2009Q2

REPORT INFORMATION
  Report Type: 
  Country: None (occurrence: None)
  Receive Date: 20090619
  Receipt Date: 20090420
  Transmission Date: 20091009
  Serious: No
  Sender: FDA-Public Use
  Company Number: SPV1-2009-00743

PATIENT
  Age: 11 Year
  Sex: Male
  Weight: 45.4 kg

DRUGS (3)
  1. VYVANSE [Suspect]
     Indication: ATTENTION DEFICIT/HYPERACTIVITY DISORDER
     Dosage: SEE IMAGE
     Route: 048
     Dates: start: 20090301, end: 20090417
  2. VYVANSE [Suspect]
     Indication: ATTENTION DEFICIT/HYPERACTIVITY DISORDER
     Dosage: SEE IMAGE
     Route: 048
     Dates: start: 20090419, end: 20090419
  3. VYVANSE [Suspect]
     Indication: ATTENTION DEFICIT/HYPERACTIVITY DISORDER
     Dosage: SEE IMAGE
     Route: 048
     Dates: start: 20090420

REACTIONS (7)
  - AGGRESSION [None]
  - ANGER [None]
  - CRYING [None]
  - DRUG EFFECT INCREASED [None]
  - FRUSTRATION [None]
  - INCORRECT DOSE ADMINISTERED [None]
  - SOCIAL PROBLEM [None]
